FAERS Safety Report 20497133 (Version 3)
Quarter: 2024Q4

REPORT INFORMATION
  Report Type: Report from Study
  Country: US (occurrence: US)
  Receive Date: 20220221
  Receipt Date: 20241225
  Transmission Date: 20250114
  Serious: No
  Sender: TAKEDA
  Company Number: US-TAKEDA-US201935131

PATIENT
  Sex: Male

DRUGS (1)
  1. IDURSULFASE [Suspect]
     Active Substance: IDURSULFASE
     Indication: Mucopolysaccharidosis II
     Dosage: UNK UNK, 1/WEEK
     Dates: start: 20170621

REACTIONS (3)
  - Device issue [Not Recovered/Not Resolved]
  - Poor venous access [Not Recovered/Not Resolved]
  - Product dose omission issue [Not Recovered/Not Resolved]
